FAERS Safety Report 14142797 (Version 9)
Quarter: 2018Q1

REPORT INFORMATION
  Report Type: Report from Study
  Country: CN (occurrence: CN)
  Receive Date: 20171030
  Receipt Date: 20180129
  Transmission Date: 20180508
  Serious: Yes (Death, Hospitalization, Other)
  Sender: FDA-Public Use
  Company Number: CN-BAYER-2017-200537

PATIENT
  Age: 40 Year
  Sex: Female

DRUGS (1)
  1. STIVARGA [Suspect]
     Active Substance: REGORAFENIB
     Indication: GASTROINTESTINAL CARCINOMA
     Dosage: 160 MG, QD
     Route: 048
     Dates: start: 20171010, end: 20171202

REACTIONS (19)
  - Vomiting [Recovering/Resolving]
  - Mental impairment [Not Recovered/Not Resolved]
  - Palmar-plantar erythrodysaesthesia syndrome [None]
  - Pain in extremity [None]
  - Death [Fatal]
  - Urinary retention [None]
  - Peripheral swelling [Not Recovered/Not Resolved]
  - Tumour pain [Not Recovered/Not Resolved]
  - Constipation [None]
  - Pain [None]
  - Thrombosis [Not Recovered/Not Resolved]
  - Peripheral swelling [None]
  - Decreased appetite [Recovering/Resolving]
  - Chest pain [None]
  - Decreased appetite [Not Recovered/Not Resolved]
  - Dizziness [None]
  - Pleural effusion [None]
  - Thrombosis [Not Recovered/Not Resolved]
  - Back pain [None]

NARRATIVE: CASE EVENT DATE: 2017
